FAERS Safety Report 15738412 (Version 1)
Quarter: 2018Q4

REPORT INFORMATION
  Report Type: Report from Study
  Country: None (occurrence: US)
  Receive Date: 20181219
  Receipt Date: 20181219
  Transmission Date: 20190205
  Serious: Yes (Other)
  Sender: FDA-Public Use
  Company Number: US-ABBVIE-18K-163-2420182-00

PATIENT
  Sex: Male

DRUGS (1)
  1. HUMIRA [Suspect]
     Active Substance: ADALIMUMAB
     Indication: MATERNAL EXPOSURE TIMING UNSPECIFIED
     Route: 064

REACTIONS (11)
  - Breath holding [Recovered/Resolved]
  - Obstructive airways disorder [Recovered/Resolved]
  - Developmental delay [Not Recovered/Not Resolved]
  - Laryngomalacia [Recovered/Resolved]
  - Erythema [Recovered/Resolved]
  - Respiratory tract malformation [Unknown]
  - Foetal exposure during pregnancy [Unknown]
  - Pectus excavatum [Not Recovered/Not Resolved]
  - Dysphagia [Not Recovered/Not Resolved]
  - Foetal growth abnormality [Not Recovered/Not Resolved]
  - Torticollis [Not Recovered/Not Resolved]

NARRATIVE: CASE EVENT DATE: 2018
